FAERS Safety Report 15716821 (Version 1)
Quarter: 2018Q4

REPORT INFORMATION
  Report Type: Spontaneous
  Country: US (occurrence: US)
  Receive Date: 20181212
  Receipt Date: 20181212
  Transmission Date: 20190205
  Serious: No
  Sender: FDA-Public Use
  Company Number: None

PATIENT
  Age: 35 Year
  Sex: Female
  Weight: 60.75 kg

DRUGS (1)
  1. NUVARING [Suspect]
     Active Substance: ETHINYL ESTRADIOL\ETONOGESTREL
     Indication: CONTRACEPTION
     Dosage: ?          QUANTITY:1 VAGINAL RING;OTHER FREQUENCY:1X/MT,RMV MIN 7DAY;?
     Route: 067
     Dates: start: 20180808, end: 20181207

REACTIONS (4)
  - Vulvovaginal discomfort [None]
  - Complication associated with device [None]
  - Vulvovaginal mycotic infection [None]
  - Vulvovaginal swelling [None]

NARRATIVE: CASE EVENT DATE: 20181107
